FAERS Safety Report 15896229 (Version 1)
Quarter: 2019Q1

REPORT INFORMATION
  Report Type: Spontaneous
  Country: NL (occurrence: NL)
  Receive Date: 20190131
  Receipt Date: 20190131
  Transmission Date: 20190417
  Serious: Yes (Other)
  Sender: FDA-Public Use
  Company Number: NL-TEVA-2019-NL-1005333

PATIENT
  Age: 45 Year
  Sex: Female
  Weight: 95 kg

DRUGS (1)
  1. DEXAMETHASON TABLET, 1,5 MG (MILLIGRAM) [Suspect]
     Active Substance: DEXAMETHASONE
     Indication: GAMMA RADIATION THERAPY TO BRAIN
     Dosage: 1 DOSAGE FORMS DAILY; INSTALLATION SCHEDULE FROM 9 TO 1.5 MG IN 12 DAYS
     Dates: start: 20181205, end: 20181216

REACTIONS (1)
  - Thrombosis [Not Recovered/Not Resolved]

NARRATIVE: CASE EVENT DATE: 20181213
